FAERS Safety Report 6461035-0 (Version None)
Quarter: 2009Q4

REPORT INFORMATION
  Report Type: 
  Country: None (occurrence: None)
  Receive Date: 20091130
  Receipt Date: 20091118
  Transmission Date: 20100525
  Serious: Yes (Hospitalization)
  Sender: FDA-Public Use
  Company Number: B0585353C

PATIENT
  Sex: Female
  Weight: 90 kg

DRUGS (2)
  1. TOPOTECAN [Suspect]
     Dosage: 3.3MG CYCLIC
     Route: 042
     Dates: start: 20090604
  2. PACLITAXEL [Suspect]
     Dosage: 131.91MG CYCLIC
     Route: 042
     Dates: start: 20090604

REACTIONS (5)
  - DYSPNOEA [None]
  - HEADACHE [None]
  - NEUROPATHY PERIPHERAL [None]
  - OEDEMA [None]
  - URETHRITIS [None]
